FAERS Safety Report 10305131 (Version 1)
Quarter: 2014Q3

REPORT INFORMATION
  Report Type: Spontaneous
  Country: US (occurrence: US)
  Receive Date: 20140715
  Receipt Date: 20140715
  Transmission Date: 20150326
  Serious: Yes (Other)
  Sender: FDA-Public Use
  Company Number: US-AMGEN-USASP2014051685

PATIENT
  Age: 82 Year
  Sex: Female

DRUGS (1)
  1. PROLIA [Suspect]
     Active Substance: DENOSUMAB
     Indication: PRODUCT USED FOR UNKNOWN INDICATION
     Dosage: UNK UNK, Q6MO
     Route: 065

REACTIONS (8)
  - Malaise [Unknown]
  - Dyspnoea [Unknown]
  - Pain [Unknown]
  - Compression fracture [Unknown]
  - Adverse drug reaction [Unknown]
  - Thrombotic stroke [Recovered/Resolved]
  - Incorrect route of drug administration [Unknown]
  - Drug hypersensitivity [Unknown]
